FAERS Safety Report 24328300 (Version 4)
Quarter: 2025Q4

REPORT INFORMATION
  Report Type: Spontaneous
  Country: US (occurrence: None)
  Receive Date: 20240917
  Receipt Date: 20251124
  Transmission Date: 20260117
  Serious: Yes (Hospitalization, Other)
  Sender: UCB
  Company Number: US-UCBSA-2024045304

PATIENT
  Age: 65 Year
  Weight: 78.005 kg

DRUGS (3)
  1. BIMZELX [Suspect]
     Active Substance: BIMEKIZUMAB-BKZX
     Indication: Psoriasis
     Dosage: 320 MILLIGRAM, EV 4 WEEKS
  2. BIMZELX [Suspect]
     Active Substance: BIMEKIZUMAB-BKZX
     Dosage: 320 MILLIGRAM, EV 8 WEEKS
  3. Lantus. [Concomitant]
     Indication: Product used for unknown indication

REACTIONS (4)
  - Sepsis [Unknown]
  - Stent placement [Unknown]
  - Product availability issue [Unknown]
  - Therapy interrupted [Unknown]
